FAERS Safety Report 8963888 (Version 1)
Quarter: 2012Q4

REPORT INFORMATION
  Report Type: 
  Country: US (occurrence: US)
  Receive Date: 20121214
  Receipt Date: 20121214
  Transmission Date: 20130627
  Serious: No
  Sender: FDA-Public Use
  Company Number: US-PFIZER INC-2012317147

PATIENT
  Age: 50 Year
  Sex: Female
  Weight: 82.54 kg

DRUGS (3)
  1. CHANTIX [Suspect]
     Indication: SMOKING CESSATION THERAPY
     Dosage: 0.5 mg, daily
     Route: 048
     Dates: start: 20121127
  2. CHANTIX [Suspect]
     Dosage: UNK
     Route: 048
     Dates: end: 20121130
  3. IBUPROFEN [Concomitant]
     Dosage: 250 mg, daily

REACTIONS (1)
  - Blister [Recovering/Resolving]
